FAERS Safety Report 6465254-9 (Version None)
Quarter: 2009Q4

REPORT INFORMATION
  Report Type: 
  Country: None (occurrence: None)
  Receive Date: 20091201
  Receipt Date: 20090111
  Transmission Date: 20100525
  Serious: No
  Sender: FDA-Public Use
  Company Number: US-AMGEN-KDL208790

PATIENT
  Sex: Female

DRUGS (2)
  1. ENBREL [Suspect]
     Indication: RHEUMATOID ARTHRITIS
     Route: 058
  2. ARAVA [Concomitant]

REACTIONS (5)
  - BRONCHIAL IRRITATION [None]
  - CONTUSION [None]
  - HEADACHE [None]
  - PNEUMONIA [None]
  - RESPIRATORY DISTRESS [None]
